FAERS Safety Report 23952191 (Version 1)
Quarter: 2024Q2

REPORT INFORMATION
  Report Type: Spontaneous
  Country: FR (occurrence: FR)
  Receive Date: 20240607
  Receipt Date: 20240607
  Transmission Date: 20240715
  Serious: Yes (Other)
  Sender: FDA-Public Use
  Company Number: None

PATIENT

DRUGS (2)
  1. SABRIL [Suspect]
     Active Substance: VIGABATRIN
     Indication: Infantile spasms
     Dosage: 750 MG, QD
     Route: 048
     Dates: start: 19900104, end: 19960603
  2. VALPROIC ACID [Suspect]
     Active Substance: VALPROIC ACID
     Indication: Infantile spasms
     Dosage: 250 MG, QD
     Route: 048
     Dates: start: 19890712, end: 19961212

REACTIONS (8)
  - Aphasia [Not Recovered/Not Resolved]
  - Optic nerve disorder [Not Recovered/Not Resolved]
  - Gait disturbance [Not Recovered/Not Resolved]
  - Small fibre neuropathy [Not Recovered/Not Resolved]
  - Vertigo [Not Recovered/Not Resolved]
  - Tremor [Not Recovered/Not Resolved]
  - Disturbance in attention [Not Recovered/Not Resolved]
  - Disturbance in attention [Not Recovered/Not Resolved]

NARRATIVE: CASE EVENT DATE: 20200101
